FAERS Safety Report 6652244-6 (Version None)
Quarter: 2010Q1

REPORT INFORMATION
  Report Type: 
  Country: None (occurrence: None)
  Receive Date: 20100325
  Receipt Date: 20100311
  Transmission Date: 20100710
  Serious: Yes (Hospitalization)
  Sender: FDA-Public Use
  Company Number: MY-GENENTECH-299632

PATIENT
  Age: 30 Year
  Sex: Male

DRUGS (1)
  1. LUCENTIS [Suspect]
     Indication: DIABETIC RETINOPATHY
     Dosage: 0.23 ML, UNK
     Route: 031

REACTIONS (1)
  - LOSS OF CONSCIOUSNESS [None]
